FAERS Safety Report 7357989-0 (Version None)
Quarter: 2011Q1

REPORT INFORMATION
  Report Type: 
  Country: None (occurrence: None)
  Receive Date: 20110317
  Receipt Date: 20110315
  Transmission Date: 20110831
  Serious: Yes (Hospitalization)
  Sender: FDA-Public Use
  Company Number: ES-ELI_LILLY_AND_COMPANY-ES201004001031

PATIENT

DRUGS (1)
  1. ATOMOXETINE HCL [Suspect]
     Dosage: 40 MG, UNK
     Route: 064
     Dates: end: 20090427

REACTIONS (3)
  - FOETAL ACIDOSIS [None]
  - BRONCHITIS [None]
  - DRUG EXPOSURE DURING PREGNANCY [None]
